FAERS Safety Report 8606439 (Version 2)
Quarter: 2013Q3

REPORT INFORMATION
  Report Type: Spontaneous
  Country: US (occurrence: US)
  Receive Date: 20120608
  Receipt Date: 20130904
  Transmission Date: 20140515
  Serious: No
  Sender: FDA-Public Use
  Company Number: US-ASTRAZENECA-2012SE10348

PATIENT
  Age: 68 Year
  Sex: Female
  Weight: 47.6 kg

DRUGS (34)
  1. PULMICORT RESPULES [Suspect]
     Indication: ASTHMA
     Dosage: MIXED WITH BROVANA VIA NEBULIZER
     Route: 055
  2. PULMICORT RESPULES [Suspect]
     Indication: ASTHMA
     Dosage: 1 MG/2 ML, TWO TIMES  A DAY
     Route: 055
  3. PULMICORT RESPULES [Suspect]
     Indication: ASTHMA
     Dosage: 1 MG/1 ML, ONCE DAILY
     Route: 055
  4. NEXIUM [Suspect]
     Indication: GASTROOESOPHAGEAL REFLUX DISEASE
     Route: 048
     Dates: start: 2013
  5. NSAIDS [Suspect]
     Route: 065
  6. VICODIN [Suspect]
     Route: 065
  7. PROAIR [Concomitant]
  8. SPIRIVA [Concomitant]
     Indication: CHRONIC OBSTRUCTIVE PULMONARY DISEASE
  9. RAVANA [Concomitant]
  10. ASPIRIN [Concomitant]
  11. ECOTRIN [Concomitant]
     Indication: ANTICOAGULANT THERAPY
  12. PREMARON [Concomitant]
  13. SINGULAIR [Concomitant]
  14. PREVACID [Concomitant]
     Indication: GASTROOESOPHAGEAL REFLUX DISEASE
  15. FISH OIL [Concomitant]
     Indication: BLOOD TRIGLYCERIDES ABNORMAL
  16. VITAMINS [Concomitant]
  17. ZANAX [Concomitant]
     Indication: GASTROINTESTINAL DISORDER
  18. AMATIZA [Concomitant]
     Indication: IRRITABLE BOWEL SYNDROME
  19. BANTAL [Concomitant]
  20. ULTRACET [Concomitant]
     Indication: ARTHRITIS
  21. BROVANA [Concomitant]
     Indication: ASTHMA
  22. BENTYL GENERIC [Concomitant]
     Indication: FUNCTIONAL GASTROINTESTINAL DISORDER
  23. ESTRADIOL [Concomitant]
  24. FLUCONAZOLE [Concomitant]
     Indication: FUNGAL INFECTION
  25. NASONEX [Concomitant]
     Indication: RHINITIS
  26. SINGULAR [Concomitant]
     Indication: ASTHMA
  27. RECLAST [Concomitant]
     Indication: OSTEOPENIA
  28. SIMVASTATIN [Concomitant]
     Indication: BLOOD CHOLESTEROL ABNORMAL
  29. SYNTHROID [Concomitant]
     Indication: HYPOTHYROIDISM
  30. CALCIUM [Concomitant]
  31. CRANBERRY PILLS [Concomitant]
     Indication: URINARY TRACT INFECTION
  32. MUCINEX [Concomitant]
  33. VITAMIN C [Concomitant]
  34. VITAMIN D [Concomitant]

REACTIONS (20)
  - Chest pain [Unknown]
  - Dysphonia [Unknown]
  - Chest discomfort [Unknown]
  - Dry throat [Unknown]
  - Asthma [Unknown]
  - Gastrooesophageal reflux disease [Recovered/Resolved]
  - Adverse event [Recovered/Resolved]
  - Incoherent [Recovered/Resolved]
  - Arthritis [Not Recovered/Not Resolved]
  - Back pain [Not Recovered/Not Resolved]
  - Sleep disorder due to general medical condition, insomnia type [Unknown]
  - Oesophageal pain [Not Recovered/Not Resolved]
  - Oropharyngeal pain [Not Recovered/Not Resolved]
  - Urinary tract infection [Not Recovered/Not Resolved]
  - Pain in extremity [Unknown]
  - Rash [Not Recovered/Not Resolved]
  - Abdominal pain upper [Not Recovered/Not Resolved]
  - Drug ineffective [Unknown]
  - Off label use [Unknown]
  - Off label use [Unknown]
